FAERS Safety Report 4317626-6 (Version None)
Quarter: 2004Q1

REPORT INFORMATION
  Report Type: 
  Country: None (occurrence: None)
  Receive Date: 20040315
  Receipt Date: 20040304
  Transmission Date: 20041129
  Serious: Yes (Hospitalization, Other)
  Sender: FDA-Public Use
  Company Number: DE-BRISTOL-MYERS SQUIBB COMPANY-12527735

PATIENT
  Age: 76 Year
  Sex: Female

DRUGS (7)
  1. APROVEL TABS 300 MG [Suspect]
     Indication: HYPERTENSION
     Route: 048
     Dates: end: 20030513
  2. SPIRONOLACTONE [Concomitant]
     Indication: OEDEMA
     Route: 048
     Dates: start: 19990101, end: 20030513
  3. TOREM [Concomitant]
     Indication: OEDEMA
     Dosage: 10 MG TABLET: 15 MG, THEN REDUCED TO 10 MG DAILY IN MAY-2003
     Route: 048
     Dates: start: 20030401
  4. TOREM [Concomitant]
     Indication: HYPERTENSION
     Dosage: 10 MG TABLET: 15 MG, THEN REDUCED TO 10 MG DAILY IN MAY-2003
     Route: 048
     Dates: start: 20030401
  5. CRANOC [Concomitant]
     Indication: HYPERLIPIDAEMIA
     Route: 048
     Dates: start: 19990101
  6. DIGITOXIN INJ [Concomitant]
     Indication: CARDIAC FAILURE
     Route: 048
     Dates: end: 20030513
  7. PHOLEDRINE [Concomitant]
     Dosage: 8-10 DROPS AS NECESSARY
     Route: 048
     Dates: end: 20030513

REACTIONS (3)
  - DEHYDRATION [None]
  - HYPOTENSION [None]
  - SYNCOPE [None]
